FAERS Safety Report 4614978-4 (Version None)
Quarter: 2005Q1

REPORT INFORMATION
  Report Type: 
  Country: None (occurrence: None)
  Receive Date: 20050315
  Receipt Date: 20050302
  Transmission Date: 20050727
  Serious: Yes (Other)
  Sender: FDA-Public Use
  Company Number: 2005020092

PATIENT
  Age: 72 Year
  Sex: Male

DRUGS (2)
  1. CELEBREX [Suspect]
     Indication: ARTHRALGIA
     Dosage: 400 MG (200 MG, 2 IN 1 D), ORAL
     Route: 048
  2. CELEBREX [Suspect]
     Indication: PROPHYLAXIS
     Dosage: 400 MG (200 MG, 2 IN 1 D), ORAL
     Route: 048

REACTIONS (4)
  - ARTHRALGIA [None]
  - ARTHRITIS [None]
  - DRUG INEFFECTIVE [None]
  - MITRAL VALVE PROLAPSE [None]
